FAERS Safety Report 6885803-6 (Version None)
Quarter: 2010Q3

REPORT INFORMATION
  Report Type: 
  Country: None (occurrence: None)
  Receive Date: 20100729
  Receipt Date: 20081101
  Transmission Date: 20110219
  Serious: No
  Sender: FDA-Public Use
  Company Number: US-PFIZER INC-2008092207

PATIENT
  Age: 53 Year
  Sex: Male
  Weight: 118.2 kg

DRUGS (7)
  1. CELEBREX [Suspect]
     Indication: SPINAL COLUMN STENOSIS
     Dates: start: 20040101
  2. CELEBREX [Suspect]
     Indication: OSTEOARTHRITIS
  3. FENTANYL [Concomitant]
     Route: 062
  4. PAXIL [Concomitant]
  5. ALTACE [Concomitant]
  6. DELATESTRYL [Concomitant]
     Indication: ANDROGEN REPLACEMENT THERAPY
  7. ALENDRONATE SODIUM [Concomitant]

REACTIONS (1)
  - TOOTH DISORDER [None]
